FAERS Safety Report 18797625 (Version 2)
Quarter: 2025Q2

REPORT INFORMATION
  Report Type: Spontaneous
  Country: DE (occurrence: DE)
  Receive Date: 20210127
  Receipt Date: 20250627
  Transmission Date: 20250716
  Serious: Yes (Other)
  Sender: AUROBINDO
  Company Number: DE-ROCHE-2749278

PATIENT
  Age: 52 Year
  Sex: Female

DRUGS (6)
  1. VALGANCICLOVIR [Suspect]
     Active Substance: VALGANCICLOVIR
     Indication: Antiviral prophylaxis
     Route: 048
  2. VALGANCICLOVIR [Suspect]
     Active Substance: VALGANCICLOVIR
     Route: 048
  3. FOSCARNET [Concomitant]
     Active Substance: FOSCARNET
     Indication: Cytomegalovirus infection reactivation
     Route: 042
  4. FOSCARNET [Concomitant]
     Active Substance: FOSCARNET
     Dosage: 60 MILLIGRAM/KILOGRAM, TWO TIMES A DAY
     Route: 042
  5. GANCICLOVIR [Concomitant]
     Active Substance: GANCICLOVIR
     Indication: Product used for unknown indication
     Route: 042
  6. GANCICLOVIR [Concomitant]
     Active Substance: GANCICLOVIR
     Route: 042

REACTIONS (1)
  - Transplant dysfunction [Unknown]
